FAERS Safety Report 6714249-6 (Version None)
Quarter: 2010Q2

REPORT INFORMATION
  Report Type: 
  Country: None (occurrence: None)
  Receive Date: 20100506
  Receipt Date: 20090505
  Transmission Date: 20101027
  Serious: Yes (Other)
  Sender: FDA-Public Use
  Company Number: US-BAUSCH-2009BL002110

PATIENT
  Age: 42 Year
  Sex: Male
  Weight: 99 kg

DRUGS (2)
  1. LOTEMAX [Suspect]
     Indication: EPISCLERITIS
     Route: 047
     Dates: start: 20080701, end: 20080901
  2. ALREX [Suspect]
     Indication: SEASONAL ALLERGY
     Route: 047
     Dates: start: 20080901, end: 20081001

REACTIONS (4)
  - GLAUCOMA [None]
  - HALO VISION [None]
  - VISION BLURRED [None]
  - VISUAL FIELD DEFECT [None]
